FAERS Safety Report 6644645-7 (Version None)
Quarter: 2010Q1

REPORT INFORMATION
  Report Type: 
  Country: None (occurrence: None)
  Receive Date: 20100322
  Receipt Date: 20100312
  Transmission Date: 20100710
  Serious: Yes (Other)
  Sender: FDA-Public Use
  Company Number: JP-MERCK-1003USA02528

PATIENT
  Age: 84 Year
  Sex: Female

DRUGS (7)
  1. FOSAMAX [Suspect]
     Indication: OSTEOPOROSIS
     Route: 048
     Dates: start: 20080423, end: 20100303
  2. LOXONIN [Concomitant]
     Indication: BACK PAIN
     Route: 065
  3. MUCOSTA [Concomitant]
     Indication: GASTRITIS
     Route: 048
  4. MYSLEE [Concomitant]
     Indication: INSOMNIA
     Route: 048
  5. URSO 250 [Concomitant]
     Indication: HEPATITIS CHOLESTATIC
     Route: 048
  6. LIVALO [Concomitant]
     Indication: HYPERLIPIDAEMIA
     Route: 065
  7. DISOPYRAMIDE [Concomitant]
     Indication: ARRHYTHMIA
     Route: 048

REACTIONS (1)
  - OSTEOMYELITIS [None]
